FAERS Safety Report 19740950 (Version 1)
Quarter: 2021Q3

REPORT INFORMATION
  Report Type: Spontaneous
  Country: US (occurrence: US)
  Receive Date: 20210825
  Receipt Date: 20210825
  Transmission Date: 20211014
  Serious: No
  Sender: FDA-Public Use
  Company Number: US-ELI_LILLY_AND_COMPANY-US202108009085

PATIENT
  Sex: Female

DRUGS (1)
  1. HUMAN INSULIN (RDNA ORIGIN) 30REG70NPH [Suspect]
     Active Substance: INSULIN HUMAN
     Indication: DIABETES MELLITUS
     Dosage: UNK UNK, PRN
     Route: 058

REACTIONS (1)
  - Injury associated with device [Recovered/Resolved]
